FAERS Safety Report 4533579-X (Version None)
Quarter: 2004Q4

REPORT INFORMATION
  Report Type: 
  Country: None (occurrence: None)
  Receive Date: 20041221
  Receipt Date: 20041012
  Transmission Date: 20050328
  Serious: Yes (Other)
  Sender: FDA-Public Use
  Company Number: PHNU2004DE03412

PATIENT
  Age: 54 Year
  Sex: Female

DRUGS (3)
  1. ESTRATEST [Suspect]
     Indication: HORMONE REPLACEMENT THERAPY
     Route: 062
     Dates: start: 20040601
  2. DOCITON [Concomitant]
  3. MARCUMAR [Concomitant]

REACTIONS (2)
  - CHEILITIS [None]
  - DIABETES MELLITUS NON-INSULIN-DEPENDENT [None]
